FAERS Safety Report 8928596 (Version 1)
Quarter: 2012Q4

REPORT INFORMATION
  Report Type: Spontaneous
  Country: US (occurrence: None)
  Receive Date: 20121126
  Receipt Date: 20121126
  Transmission Date: 20130627
  Serious: Yes (Other)
  Sender: FDA-Public Use
  Company Number: None

PATIENT
  Age: 45 Year
  Sex: Female
  Weight: 70.31 kg

DRUGS (2)
  1. DEXAMETHASONE\LIDOCAINE\TRIAMCINOLONE [Suspect]
     Indication: SPINAL STENOSIS NOS
     Dates: start: 20120926, end: 20120926
  2. DEXAMETHASONE\LIDOCAINE\TRIAMCINOLONE [Suspect]
     Indication: LUMBAR PAIN
     Dates: start: 20120926, end: 20120926

REACTIONS (4)
  - Fatigue [None]
  - Headache [None]
  - Malaise [None]
  - Arthralgia [None]
